FAERS Safety Report 6447311-6 (Version None)
Quarter: 2009Q4

REPORT INFORMATION
  Report Type: 
  Country: None (occurrence: None)
  Receive Date: 20091119
  Receipt Date: 20091109
  Transmission Date: 20100525
  Serious: Yes (Hospitalization, Other)
  Sender: FDA-Public Use
  Company Number: US-AMGEN-QUU373653

PATIENT
  Sex: Female

DRUGS (3)
  1. ENBREL [Suspect]
     Indication: RHEUMATOID ARTHRITIS
     Route: 058
     Dates: start: 20030601
  2. METHOTREXATE [Concomitant]
  3. ARAVA [Concomitant]

REACTIONS (6)
  - ASTHENIA [None]
  - CATARACT [None]
  - HIP FRACTURE [None]
  - KNEE ARTHROPLASTY [None]
  - NAUSEA [None]
  - VISUAL IMPAIRMENT [None]
